FAERS Safety Report 18299569 (Version 1)
Quarter: 2020Q3

REPORT INFORMATION
  Report Type: Spontaneous
  Country: US (occurrence: US)
  Receive Date: 20200922
  Receipt Date: 20200922
  Transmission Date: 20201103
  Serious: Yes (Other)
  Sender: FDA-Public Use
  Company Number: US-PURDUE-USA-2020-0166690

PATIENT
  Sex: Male
  Weight: 84 kg

DRUGS (2)
  1. TYLENOL [Suspect]
     Active Substance: ACETAMINOPHEN
     Indication: PRODUCT USED FOR UNKNOWN INDICATION
     Dosage: 4 G, DAILY
     Route: 065
  2. HYDROCODONE BITARTRATE AND ACETAMINOPHEN [Suspect]
     Active Substance: ACETAMINOPHEN\HYDROCODONE BITARTRATE
     Indication: PAIN
     Dosage: 10?325 MG, Q6H
     Route: 048

REACTIONS (11)
  - Intervertebral disc degeneration [Unknown]
  - Bipolar disorder [Unknown]
  - Essential hypertension [Unknown]
  - Urinary tract infection [Unknown]
  - Schizophrenia [Unknown]
  - Insomnia [Unknown]
  - Back pain [Unknown]
  - Bronchitis chronic [Unknown]
  - Hallucination [Unknown]
  - Cough [Unknown]
  - Upper respiratory tract infection [Unknown]
